FAERS Safety Report 10007195 (Version 1)
Quarter: 2014Q1

REPORT INFORMATION
  Report Type: Spontaneous
  Country: US (occurrence: None)
  Receive Date: 20140312
  Receipt Date: 20140312
  Transmission Date: 20141002
  Serious: Yes (Death)
  Sender: FDA-Public Use
  Company Number: None

PATIENT
  Age: 62 Year
  Sex: Female
  Weight: 82.1 kg

DRUGS (8)
  1. VICTOZA [Suspect]
     Indication: DIABETES MELLITUS
     Route: 058
     Dates: start: 20130908, end: 20130911
  2. LISINOPRIL [Concomitant]
  3. METFORMIN [Concomitant]
  4. CARDIZEM [Concomitant]
  5. SIMVASTATIN [Concomitant]
  6. VITAMIN D2 [Concomitant]
  7. ASPIRIN 81 [Concomitant]
  8. LASIX [Concomitant]

REACTIONS (4)
  - Nausea [None]
  - Dehydration [None]
  - Cardiac arrest [None]
  - Abdominal pain [None]
